FAERS Safety Report 24601817 (Version 1)
Quarter: 2024Q4

REPORT INFORMATION
  Report Type: Spontaneous
  Country: US (occurrence: US)
  Receive Date: 20241111
  Receipt Date: 20241111
  Transmission Date: 20250115
  Serious: No
  Sender: GLAXOSMITHKLINE
  Company Number: US-GSK-US2024130759

PATIENT
  Age: 56 Year
  Sex: Female
  Weight: 74.84 kg

DRUGS (5)
  1. BENLYSTA [Suspect]
     Active Substance: BELIMUMAB
     Indication: Systemic lupus erythematosus
     Dosage: 200 MG/ML, WE
     Dates: start: 202408
  2. HYDROXYCHLOROQUINE [Concomitant]
     Active Substance: HYDROXYCHLOROQUINE
     Indication: Systemic lupus erythematosus
     Dosage: 200 MG
     Dates: start: 201108
  3. TRAZODONE [Concomitant]
     Active Substance: TRAZODONE HYDROCHLORIDE
     Indication: Insomnia
     Dosage: 50 MG, QD
     Dates: start: 2022
  4. TIZANIDINE [Concomitant]
     Active Substance: TIZANIDINE
     Indication: Insomnia
     Dosage: UNK
  5. AMLODIPINE [Concomitant]
     Active Substance: AMLODIPINE BESYLATE
     Indication: Hypotension
     Dosage: 5 MG, QD
     Dates: start: 2020

REACTIONS (3)
  - Pain in extremity [Not Recovered/Not Resolved]
  - Fatigue [Unknown]
  - Peripheral coldness [Unknown]

NARRATIVE: CASE EVENT DATE: 20241001
